FAERS Safety Report 5601170-X (Version None)
Quarter: 2008Q1

REPORT INFORMATION
  Report Type: 
  Country: None (occurrence: None)
  Receive Date: 20080124
  Receipt Date: 20080116
  Transmission Date: 20080703
  Serious: Yes (Disabling)
  Sender: FDA-Public Use
  Company Number: JP-ASTRAZENECA-2008AP00434

PATIENT
  Age: 61 Year
  Sex: Female

DRUGS (3)
  1. ANAPEINE INJECTION [Suspect]
     Dosage: DOSE UNKNOWN
     Route: 008
     Dates: start: 20041201, end: 20041201
  2. ANAPEINE INJECTION [Suspect]
     Dosage: DOSE UNKNOWN
     Dates: start: 20041201, end: 20041201
  3. MARCAINE HYDROCHLORIDE PRESERVATIVE FREE [Suspect]
     Dosage: DOSE UNKNOWN
     Route: 037
     Dates: start: 20041201, end: 20041201

REACTIONS (3)
  - ANORECTAL DISORDER [None]
  - PARAESTHESIA [None]
  - PARAPLEGIA [None]
